FAERS Safety Report 11043672 (Version 3)
Quarter: 2016Q3

REPORT INFORMATION
  Report Type: Report from Study
  Country: JP (occurrence: JP)
  Receive Date: 20150417
  Receipt Date: 20160923
  Transmission Date: 20161109
  Serious: Yes (Hospitalization)
  Sender: FDA-Public Use
  Company Number: JP-SA-2015SA048319

PATIENT
  Age: 75 Year
  Sex: Male
  Weight: 63 kg

DRUGS (8)
  1. PREDONINE [Concomitant]
     Active Substance: PREDNISOLONE\PREDNISOLONE ACETATE\PREDNISOLONE SODIUM SUCCINATE
     Indication: PROSTATE CANCER
     Route: 048
     Dates: start: 20150209, end: 20151229
  2. GASTER [Concomitant]
     Active Substance: FAMOTIDINE
     Indication: PREMEDICATION
     Route: 042
     Dates: start: 20150303, end: 20150303
  3. JEVTANA [Suspect]
     Active Substance: CABAZITAXEL
     Indication: PROSTATE CANCER
     Route: 042
     Dates: start: 20150303, end: 20150303
  4. DECADRON (DEXAMETHASONE SODIUM PHOSPHATE) [Concomitant]
     Active Substance: DEXAMETHASONE SODIUM PHOSPHATE
     Indication: PREMEDICATION
     Route: 042
     Dates: start: 20150303, end: 20150303
  5. ESTROGEN NOS [Suspect]
     Active Substance: ESTROGENS
     Route: 065
     Dates: start: 201503
  6. CHLOR-TRIMETON [Concomitant]
     Active Substance: CHLORPHENIRAMINE MALEATE
     Indication: PREMEDICATION
     Route: 042
     Dates: start: 20150303, end: 20150303
  7. G-LASTA [Concomitant]
     Active Substance: PEGFILGRASTIM
     Dosage: ONCE ON DAY 2 OF EACH JEVTANA THERAPY
     Route: 058
     Dates: start: 20150211, end: 20150630
  8. JEVTANA [Suspect]
     Active Substance: CABAZITAXEL
     Indication: PROSTATE CANCER
     Route: 042
     Dates: start: 20150210, end: 20150210

REACTIONS (1)
  - Cerebral infarction [Not Recovered/Not Resolved]

NARRATIVE: CASE EVENT DATE: 201504
